FAERS Safety Report 12256653 (Version 2)
Quarter: 2016Q3

REPORT INFORMATION
  Report Type: Spontaneous
  Country: US (occurrence: US)
  Receive Date: 20160412
  Receipt Date: 20160817
  Transmission Date: 20161109
  Serious: Yes (Other)
  Sender: FDA-Public Use
  Company Number: US-009507513-1604USA002055

PATIENT
  Sex: Male

DRUGS (5)
  1. INDERAL [Concomitant]
     Active Substance: PROPRANOLOL HYDROCHLORIDE
     Indication: VENTRICULAR EXTRASYSTOLES
  2. PROPECIA [Suspect]
     Active Substance: FINASTERIDE
     Indication: ALOPECIA
     Dosage: 1 MG, UNK
     Route: 048
     Dates: start: 20010418, end: 20120504
  3. INDERAL [Concomitant]
     Active Substance: PROPRANOLOL HYDROCHLORIDE
     Indication: SKIN DISORDER
     Dosage: 10 MG, UNK
     Route: 065
     Dates: start: 1976
  4. PROPECIA [Suspect]
     Active Substance: FINASTERIDE
     Indication: ANDROGENETIC ALOPECIA
  5. KENALOG [Concomitant]
     Active Substance: TRIAMCINOLONE ACETONIDE
     Indication: PRURITUS
     Dosage: 0.1 %, UNK
     Route: 061
     Dates: start: 2000

REACTIONS (14)
  - Prostatic haemorrhage [Unknown]
  - Depression [Unknown]
  - Lower urinary tract symptoms [Unknown]
  - Erectile dysfunction [Not Recovered/Not Resolved]
  - Loss of libido [Unknown]
  - Haematospermia [Unknown]
  - Prostatic obstruction [Unknown]
  - Male orgasmic disorder [Unknown]
  - Haematuria [Unknown]
  - Benign prostatic hyperplasia [Unknown]
  - Prostatic disorder [Unknown]
  - Sexual dysfunction [Not Recovered/Not Resolved]
  - Anxiety [Unknown]
  - Bladder diverticulum [Unknown]

NARRATIVE: CASE EVENT DATE: 2011
